FAERS Safety Report 8218275-X (Version None)
Quarter: 2012Q1

REPORT INFORMATION
  Report Type: 
  Country: None (occurrence: None)
  Receive Date: 20120305
  Receipt Date: 20111216
  Transmission Date: 20120608
  Serious: No
  Sender: FDA-Public Use
  Company Number: 1000026537

PATIENT
  Age: 89 Year
  Sex: Female

DRUGS (3)
  1. SPIRIVA (TIOTROPIUM BROMIDE) (TIOTROPIUM BROMIDE) [Concomitant]
  2. DALIRESP [Suspect]
     Indication: CHRONIC OBSTRUCTIVE PULMONARY DISEASE
     Dosage: 500 MCG (500 MCG, 1 IN 1 D), ORAL
     Route: 048
     Dates: start: 20111101, end: 20110101
  3. ADVAIR (SERETIDE) (SERETIDE) [Concomitant]

REACTIONS (1)
  - HALLUCINATION [None]
